FAERS Safety Report 5692022-8 (Version None)
Quarter: 2008Q2

REPORT INFORMATION
  Report Type: 
  Country: None (occurrence: None)
  Receive Date: 20080402
  Receipt Date: 20080328
  Transmission Date: 20081010
  Serious: Yes (Life-Threatening)
  Sender: FDA-Public Use
  Company Number: US-MERCK-0803USA05063

PATIENT
  Age: 13 Year
  Sex: Female

DRUGS (4)
  1. SINGULAIR [Suspect]
     Indication: ASTHMA
     Route: 048
     Dates: start: 20060817, end: 20080328
  2. NASONEX [Concomitant]
     Route: 065
  3. ALBUTEROL [Concomitant]
     Route: 065
  4. ZYRTEC [Concomitant]
     Route: 065

REACTIONS (1)
  - SUICIDE ATTEMPT [None]
